FAERS Safety Report 19061499 (Version 1)
Quarter: 2021Q1

REPORT INFORMATION
  Report Type: Spontaneous
  Country: PL (occurrence: PL)
  Receive Date: 20210325
  Receipt Date: 20210325
  Transmission Date: 20210420
  Serious: Yes (Hospitalization)
  Sender: FDA-Public Use
  Company Number: PL-009507513-2103POL005588

PATIENT
  Age: 8 Year
  Sex: Female
  Weight: 25 kg

DRUGS (4)
  1. GANCICLOVIR. [Suspect]
     Active Substance: GANCICLOVIR
     Indication: CYTOMEGALOVIRUS INFECTION REACTIVATION
     Dosage: UNK
     Route: 042
     Dates: start: 20210308
  2. ZAVICEFTA [Concomitant]
     Active Substance: AVIBACTAM SODIUM\CEFTAZIDIME
     Indication: PSEUDOMONAS INFECTION
     Dosage: 150MG/KG/DAILY
     Route: 042
     Dates: start: 20210223
  3. PREVYMIS [Suspect]
     Active Substance: LETERMOVIR
     Indication: ALLOGENIC STEM CELL TRANSPLANTATION
     Dosage: 120 MG/DAILY
     Dates: start: 20210303, end: 20210310
  4. COLISTIN [Concomitant]
     Active Substance: COLISTIN
     Indication: PSEUDOMONAS INFECTION
     Dosage: INTRAVENOUSLY 2X27 ML
     Route: 042
     Dates: start: 20210215

REACTIONS (4)
  - BK virus infection [Unknown]
  - Drug ineffective for unapproved indication [Unknown]
  - Product use issue [Unknown]
  - Condition aggravated [Unknown]

NARRATIVE: CASE EVENT DATE: 202103
